FAERS Safety Report 7269819-6 (Version None)
Quarter: 2011Q1

REPORT INFORMATION
  Report Type: 
  Country: None (occurrence: None)
  Receive Date: 20110126
  Receipt Date: 20110105
  Transmission Date: 20110831
  Serious: Yes (Death, Hospitalization)
  Sender: FDA-Public Use
  Company Number: PL-021829

PATIENT
  Age: 67 Year
  Sex: Male

DRUGS (1)
  1. CHLORAMBUCIL [Suspect]
     Indication: CHRONIC LYMPHOCYTIC LEUKAEMIA
     Dosage: ORAL
     Route: 048
     Dates: end: 20101104

REACTIONS (2)
  - CARDIAC FAILURE [None]
  - SUDDEN DEATH [None]
